FAERS Safety Report 26085071 (Version 1)
Quarter: 2025Q4

REPORT INFORMATION
  Report Type: Spontaneous
  Country: EU (occurrence: EU)
  Receive Date: 20251125
  Receipt Date: 20251125
  Transmission Date: 20260118
  Serious: Yes (Death, Hospitalization, Other)
  Sender: PURACAP PHARMACEUTICAL LLC
  Company Number: EU-PURACAP-DE-2025EPCLIT01222

PATIENT
  Age: 26 Year
  Sex: Female
  Weight: 50 kg

DRUGS (6)
  1. IBUPROFEN [Suspect]
     Active Substance: IBUPROFEN
     Indication: Product used for unknown indication
     Dosage: (504 MG/KG)
     Route: 048
  2. PAROXETINE HYDROCHLORIDE [Suspect]
     Active Substance: PAROXETINE HYDROCHLORIDE
     Indication: Product used for unknown indication
     Dosage: (80 MG/KG)
     Route: 048
  3. AGOMELATINE [Suspect]
     Active Substance: AGOMELATINE
     Indication: Product used for unknown indication
     Route: 048
  4. ACETAMINOPHEN [Suspect]
     Active Substance: ACETAMINOPHEN
     Indication: Product used for unknown indication
     Dosage: (160 MG/KG)
     Route: 048
  5. ASPIRIN [Suspect]
     Active Substance: ASPIRIN
     Indication: Product used for unknown indication
     Dosage: (100 MG/KG)
     Route: 048
  6. CAFFEINE [Suspect]
     Active Substance: CAFFEINE
     Indication: Product used for unknown indication
     Dosage: 20 MG/KG
     Route: 048

REACTIONS (18)
  - Serotonin syndrome [Fatal]
  - Acute respiratory distress syndrome [Fatal]
  - Respiratory failure [Fatal]
  - Pneumonia [Fatal]
  - Necrosis [Fatal]
  - Delirium [Fatal]
  - Sinus tachycardia [Fatal]
  - Toxicity to various agents [Fatal]
  - Somnolence [Fatal]
  - Disorientation [Fatal]
  - Heart rate increased [Fatal]
  - Agitation [Fatal]
  - Clonus [Fatal]
  - Mydriasis [Fatal]
  - Tachycardia [Fatal]
  - Hypotension [Fatal]
  - Pyrexia [Recovered/Resolved]
  - Intentional overdose [Unknown]
